FAERS Safety Report 15043379 (Version 3)
Quarter: 2018Q3

REPORT INFORMATION
  Report Type: Spontaneous
  Country: DE (occurrence: DE)
  Receive Date: 20180621
  Receipt Date: 20180726
  Transmission Date: 20181010
  Serious: Yes (Hospitalization, Other)
  Sender: FDA-Public Use
  Company Number: DE-WEST-WARD PHARMACEUTICALS CORP.-DE-H14001-18-05069

PATIENT
  Age: 59 Year
  Sex: Female
  Weight: 58.4 kg

DRUGS (41)
  1. DOXORUBICIN [Suspect]
     Active Substance: DOXORUBICIN
     Route: 041
     Dates: start: 20180608, end: 20180608
  2. RIXIMYO [Suspect]
     Active Substance: RITUXIMAB
     Dosage: 630 MG, UNK
     Route: 041
     Dates: start: 20180514, end: 20180514
  3. RIXIMYO [Suspect]
     Active Substance: RITUXIMAB
     Route: 048
     Dates: start: 20180516, end: 20180519
  4. G?CSF [Concomitant]
     Active Substance: GRANULOCYTE COLONY-STIMULATING FACTOR NOS
     Indication: PROPHYLAXIS
     Dosage: UNK ()
     Route: 058
     Dates: start: 20180517, end: 20180522
  5. DIMETINDENE [Concomitant]
     Active Substance: DIMETHINDENE
     Indication: PROPHYLAXIS
     Dosage: 4 MG, UNK
     Route: 042
     Dates: start: 20180328
  6. MTX [Concomitant]
     Active Substance: METHOTREXATE SODIUM
     Indication: MIXED CONNECTIVE TISSUE DISEASE
     Route: 048
     Dates: start: 20180327, end: 20180327
  7. PREDNISONE. [Suspect]
     Active Substance: PREDNISONE
     Route: 048
     Dates: start: 20180609, end: 20180612
  8. VINCRISTINE [Suspect]
     Active Substance: VINCRISTINE
     Route: 041
     Dates: start: 20180608, end: 20180608
  9. CYCLOPHOSPHAMIDE. [Suspect]
     Active Substance: CYCLOPHOSPHAMIDE
     Dates: start: 20180608, end: 20180608
  10. SIMVASTATIN. [Concomitant]
     Active Substance: SIMVASTATIN
     Indication: PRODUCT USED FOR UNKNOWN INDICATION
     Dosage: 20 MG, UNK
     Route: 048
  11. DEKRISTOL [Concomitant]
     Active Substance: CHOLECALCIFEROL
     Indication: PRODUCT USED FOR UNKNOWN INDICATION
     Dosage: 20.000 OT, UNK ()
     Route: 048
  12. PREDNISONE. [Suspect]
     Active Substance: PREDNISONE
     Route: 042
     Dates: start: 20180328
  13. RIXIMYO [Suspect]
     Active Substance: RITUXIMAB
     Route: 041
     Dates: start: 20180607
  14. PREDNISOLONE. [Concomitant]
     Active Substance: PREDNISOLONE
     Indication: PROPHYLAXIS
     Dosage: 100 MG, UNK
     Route: 042
     Dates: start: 20180328
  15. ACICLOVIR [Concomitant]
     Active Substance: ACYCLOVIR
     Indication: PROPHYLAXIS
     Dosage: 200 MG, UNK
     Route: 048
     Dates: start: 20180328, end: 20180509
  16. DOXORUBICIN [Suspect]
     Active Substance: DOXORUBICIN
     Dosage: 85 MG, (INFUSION RATE 16.66 ML/MIN FROM 10:02)
     Route: 041
     Dates: start: 20180420, end: 20180420
  17. PREDNISONE. [Suspect]
     Active Substance: PREDNISONE
     Indication: DIFFUSE LARGE B-CELL LYMPHOMA
     Dosage: 400 MG, UNK
     Route: 048
     Dates: start: 20180329, end: 20180401
  18. RIXIMYO [Suspect]
     Active Substance: RITUXIMAB
     Dosage: 630 MG, UNK
     Route: 041
     Dates: start: 20180419, end: 20180419
  19. VINCRISTINE [Suspect]
     Active Substance: VINCRISTINE
     Indication: DIFFUSE LARGE B-CELL LYMPHOMA
     Dosage: 2 MG, (INFUSION RATE 16.66 ML/MIN FROM 12:10 TO 12:20)
     Route: 041
     Dates: start: 20180329, end: 20180329
  20. MESNA. [Concomitant]
     Active Substance: MESNA
     Indication: PROPHYLAXIS
     Dosage: 400 MG, UNK
     Route: 042
     Dates: start: 20180328
  21. UROMITEXAN [Concomitant]
     Active Substance: MESNA
     Indication: PROPHYLAXIS
     Dosage: 400 OT, UNK ()
     Route: 048
     Dates: start: 20180328
  22. L?THYROXIN [Concomitant]
     Active Substance: LEVOTHYROXINE SODIUM
     Indication: HYPOTHYROIDISM
     Dosage: 50 MG, UNK
     Route: 048
  23. FOLSAEURE [Concomitant]
     Active Substance: FOLIC ACID
     Indication: MIXED CONNECTIVE TISSUE DISEASE
     Dosage: UNK ()
     Route: 048
     Dates: start: 20180327
  24. PANTOPRAZOL [Concomitant]
     Active Substance: PANTOPRAZOLE SODIUM
     Indication: PRODUCT USED FOR UNKNOWN INDICATION
     Dosage: 40 MG, UNK
     Route: 048
  25. VINCRISTINE [Suspect]
     Active Substance: VINCRISTINE
     Dosage: 2 MG, (INFUSION RATE 16.66 ML/MIN FROM 12:15)
     Route: 041
     Dates: start: 20180420, end: 20180420
  26. CYCLOPHOSPHAMIDE. [Suspect]
     Active Substance: CYCLOPHOSPHAMIDE
     Indication: DIFFUSE LARGE B-CELL LYMPHOMA
     Dosage: 1250 MG, (INFUSION RATE 4.16 ML/MIN FROM 09:52 TO 11:52)
     Route: 041
     Dates: start: 20180420, end: 20180420
  27. CYCLOPHOSPHAMIDE. [Suspect]
     Active Substance: CYCLOPHOSPHAMIDE
     Dosage: 1250 MG, (10:00?12:00)
     Route: 041
     Dates: start: 20180329, end: 20180329
  28. DOXORUBICIN [Suspect]
     Active Substance: DOXORUBICIN
     Indication: DIFFUSE LARGE B-CELL LYMPHOMA
     Dosage: 85 MG, (INFUSION RATE 16.66 ML/MIN FROM 09:33 TO 09:43)
     Route: 041
     Dates: start: 20180329, end: 20180329
  29. PREDNISONE. [Suspect]
     Active Substance: PREDNISONE
     Indication: PROPHYLAXIS
     Dosage: 400 MG, UNK
     Route: 048
     Dates: start: 20180516, end: 20180519
  30. PREDNISONE. [Suspect]
     Active Substance: PREDNISONE
     Dosage: 400 MG, UNK
     Route: 048
     Dates: start: 20180421, end: 20180424
  31. VINCRISTINE [Suspect]
     Active Substance: VINCRISTINE
     Dosage: 2 MG, (INFUSION RATE 16.66 ML/MIN FROM 12:14)
     Route: 041
     Dates: start: 20180515, end: 20180515
  32. CYCLOPHOSPHAMIDE. [Suspect]
     Active Substance: CYCLOPHOSPHAMIDE
     Dosage: 1250 MG, (INFUSION RATE 4.16 ML/MIN FROM 10:10)
     Route: 041
     Dates: start: 20180515, end: 20180515
  33. PARACETAMOL [Concomitant]
     Active Substance: ACETAMINOPHEN
     Indication: PROPHYLAXIS
     Dosage: 1000 MG, UNK
     Route: 048
     Dates: start: 20180328
  34. QUENSYL [Concomitant]
     Active Substance: HYDROXYCHLOROQUINE
     Indication: MIXED CONNECTIVE TISSUE DISEASE
     Dosage: 200 MG, UNK
     Route: 048
     Dates: start: 20180327
  35. QUENSYL [Concomitant]
     Active Substance: HYDROXYCHLOROQUINE
     Route: 048
     Dates: start: 20180607
  36. ONDANSETRON [Concomitant]
     Active Substance: ONDANSETRON
     Indication: PROPHYLAXIS
     Dosage: 8 MG, UNK
     Route: 048
     Dates: start: 20180328
  37. DOXORUBICIN [Suspect]
     Active Substance: DOXORUBICIN
     Dosage: 85 MG, (INFUSION RATE 16.66 ML/MIN FROM 09:49)
     Route: 041
     Dates: start: 20180515, end: 20180515
  38. RIXIMYO [Suspect]
     Active Substance: RITUXIMAB
     Indication: DIFFUSE LARGE B-CELL LYMPHOMA
     Dosage: 630 MG, UNK
     Route: 041
     Dates: start: 20180328, end: 20180328
  39. GRANISETRON [Concomitant]
     Active Substance: GRANISETRON
     Indication: PROPHYLAXIS
     Dosage: 1 MG, UNK
     Route: 042
     Dates: start: 20180329
  40. REVATIO [Concomitant]
     Active Substance: SILDENAFIL CITRATE
     Indication: PULMONARY FIBROSIS
     Dosage: UNK ()
     Route: 048
  41. COTRIMOXAZOL [Concomitant]
     Active Substance: SULFAMETHOXAZOLE\TRIMETHOPRIM
     Indication: PROPHYLAXIS
     Dosage: 960 MG, UNK
     Route: 048
     Dates: start: 20180328, end: 20180514

REACTIONS (16)
  - Leukopenia [Recovered/Resolved]
  - Neutropenia [Recovered/Resolved]
  - Thrombocytopenia [Recovered/Resolved]
  - Hypotension [Recovered/Resolved]
  - Oral candidiasis [Recovered/Resolved]
  - Rash [Not Recovered/Not Resolved]
  - Anaemia [Recovered/Resolved]
  - Pancytopenia [Recovered/Resolved]
  - Pyrexia [Recovered/Resolved]
  - Sepsis [Not Recovered/Not Resolved]
  - Fungal infection [Recovered/Resolved]
  - Dehydration [Unknown]
  - Febrile neutropenia [Not Recovered/Not Resolved]
  - General physical health deterioration [Not Recovered/Not Resolved]
  - Chronic hepatitis B [Not Recovered/Not Resolved]
  - Hypokalaemia [Recovered/Resolved]

NARRATIVE: CASE EVENT DATE: 20180403
